FAERS Safety Report 16546915 (Version 1)
Quarter: 2019Q3

REPORT INFORMATION
  Report Type: Spontaneous
  Country: NL (occurrence: NL)
  Receive Date: 20190709
  Receipt Date: 20190709
  Transmission Date: 20191004
  Serious: Yes (Life-Threatening)
  Sender: FDA-Public Use
  Company Number: NL-MYLANLABS-2019M1062895

PATIENT
  Sex: Female

DRUGS (7)
  1. TICAGRELOR. [Concomitant]
     Active Substance: TICAGRELOR
     Dosage: 90 MILLIGRAM, QD (1 DD 1)
  2. ACETYLSALICYLZUUR [Concomitant]
     Active Substance: ASPIRIN
     Dosage: 80 MILLIGRAM, QD (1 DD 1)
  3. PERINDOPRIL [Concomitant]
     Active Substance: PERINDOPRIL
     Dosage: 2 MILLIGRAM, QD (1 DD 1)
  4. PANTOPRAZOL                        /01263201/ [Concomitant]
     Active Substance: PANTOPRAZOLE
     Dosage: 20 MILLIGRAM, QD (1 DD 1)
  5. METOPROLOL. [Concomitant]
     Active Substance: METOPROLOL
     Dosage: 25 MILLIGRAM, QD (1 DD 1)
  6. DICLOFENAC [Concomitant]
     Active Substance: DICLOFENAC
     Dosage: 25 MILLIGRAM (1 DD 1 ZONODIG)
  7. ROSUVASTATIN. [Suspect]
     Active Substance: ROSUVASTATIN
     Indication: MYOCARDIAL INFARCTION
     Dosage: 5 MILLIGRAM, QD (1 MAAL DAAGS 1 STUK)
     Route: 048
     Dates: start: 20180608, end: 20190101

REACTIONS (2)
  - Disturbance in attention [Recovering/Resolving]
  - Memory impairment [Recovering/Resolving]
